FAERS Safety Report 7761241-9 (Version None)
Quarter: 2011Q3

REPORT INFORMATION
  Report Type: 
  Country: None (occurrence: None)
  Receive Date: 20110920
  Receipt Date: 20110908
  Transmission Date: 20111222
  Serious: Yes (Hospitalization)
  Sender: FDA-Public Use
  Company Number: JP-NAPPMUNDI-MAG-2011-0001577

PATIENT
  Sex: Male

DRUGS (13)
  1. RISPERDAL [Concomitant]
     Dosage: UNK
     Route: 048
     Dates: start: 20110123
  2. DIAZEPAM [Concomitant]
     Route: 048
  3. OXYCODONE HCL [Suspect]
     Dosage: 40 MG, DAILY
     Route: 048
     Dates: start: 20110115, end: 20110126
  4. CLONAZEPAM [Concomitant]
     Indication: CANCER PAIN
     Route: 048
  5. ROHYPNOL [Concomitant]
     Route: 048
  6. PAXIL [Concomitant]
     Route: 048
  7. MAGNESIUM SULFATE [Concomitant]
     Route: 048
  8. XYLOCAINE [Concomitant]
     Indication: CANCER PAIN
     Dosage: UNK
     Dates: start: 20110105, end: 20110120
  9. OXYCODONE HCL [Suspect]
     Indication: CANCER PAIN
     Dosage: 5 MG, DAILY
     Route: 048
     Dates: start: 20110115, end: 20110322
  10. LYRICA [Concomitant]
     Indication: CANCER PAIN
     Route: 048
  11. TRYPTANOL                          /00002202/ [Concomitant]
     Route: 048
  12. OXYCODONE HCL [Suspect]
     Indication: CANCER PAIN
     Dosage: 50 MG, DAILY
     Route: 048
     Dates: start: 20110127
  13. ZOMETA [Concomitant]
     Indication: CANCER PAIN
     Dosage: UNK
     Dates: start: 20110111, end: 20110309

REACTIONS (2)
  - PNEUMONIA [None]
  - SEDATION [None]
